FAERS Safety Report 6705355-0 (Version None)
Quarter: 2010Q2

REPORT INFORMATION
  Report Type: 
  Country: None (occurrence: None)
  Receive Date: 20100502
  Receipt Date: 20100427
  Transmission Date: 20101027
  Serious: Yes (Hospitalization)
  Sender: FDA-Public Use
  Company Number: US-BRISTOL-MYERS SQUIBB COMPANY-15081268

PATIENT
  Age: 58 Year
  Sex: Male
  Weight: 58 kg

DRUGS (4)
  1. ERBITUX [Suspect]
     Indication: OESOPHAGEAL CARCINOMA
     Dosage: 400MG/M2 OVER 120MIN,WEEKLY INF OF 250MG/M2 OVER 160MIN ON DAY 8,15,22,29,36
     Route: 042
     Dates: start: 20100323, end: 20100412
  2. TAXOL [Suspect]
     Indication: OESOPHAGEAL CARCINOMA
     Dosage: 50MG/M2 OVER 1HR WEEKLY ON DAY 1,8,15,22,29,36
     Route: 042
     Dates: start: 20100323, end: 20100412
  3. CISPLATIN [Suspect]
     Indication: OESOPHAGEAL CARCINOMA
     Dosage: 25MG/M2 INF OVER 30-60 MIN ON DAY 1,8,15,22,29,36
     Route: 042
     Dates: start: 20100323, end: 20100412
  4. RADIATION THERAPY [Suspect]
     Indication: OESOPHAGEAL CARCINOMA
     Dosage: 1DF:3060CGY 50.4GY AT 180CGY/FX FOR 6 CYCLES/5DAYS PER CYCLE NO.OF FRACT:17 ELAPSED:35
     Dates: start: 20100323, end: 20100423

REACTIONS (5)
  - HYPOALBUMINAEMIA [None]
  - HYPONATRAEMIA [None]
  - LYMPHOPENIA [None]
  - REGURGITATION [None]
  - WHITE BLOOD CELL COUNT DECREASED [None]
